FAERS Safety Report 6726634-7 (Version None)
Quarter: 2010Q2

REPORT INFORMATION
  Report Type: 
  Country: None (occurrence: None)
  Receive Date: 20100514
  Receipt Date: 20100506
  Transmission Date: 20101027
  Serious: Yes (Other)
  Sender: FDA-Public Use
  Company Number: BR-ABBOTT-10P-020-0642872-00

PATIENT
  Sex: Male

DRUGS (4)
  1. HUMIRA [Suspect]
     Indication: ANKYLOSING SPONDYLITIS
     Route: 058
     Dates: start: 20100303
  2. PRELONE [Suspect]
     Indication: ANKYLOSING SPONDYLITIS
     Route: 048
     Dates: start: 20100115
  3. DICLOFENAC / CODEINE PHOSPHATE (CODATEN) [Concomitant]
     Indication: ANKYLOSING SPONDYLITIS
     Route: 048
     Dates: start: 20100115
  4. PANTOCAL [Concomitant]
     Indication: GASTRIC DISORDER
     Route: 048
     Dates: start: 20100115

REACTIONS (2)
  - BALANCE DISORDER [None]
  - TENDON RUPTURE [None]
